FAERS Safety Report 7551142-3 (Version None)
Quarter: 2011Q2

REPORT INFORMATION
  Report Type: 
  Country: None (occurrence: None)
  Receive Date: 20110609
  Receipt Date: 20110524
  Transmission Date: 20111010
  Serious: Yes (Other)
  Sender: FDA-Public Use
  Company Number: 2011MA006447

PATIENT
  Age: 83 Year
  Sex: Male

DRUGS (4)
  1. INTRAVITREAL [Concomitant]
  2. TRIAMCINOLONE ACETONIDE [Suspect]
     Indication: CHOROIDAL NEOVASCULARISATION
     Dosage: 20 MG
     Dates: start: 20090201, end: 20090201
  3. BEVACIZUMAB [Concomitant]
  4. RANIBIZUMAB [Concomitant]

REACTIONS (1)
  - CYTOMEGALOVIRUS CHORIORETINITIS [None]
